FAERS Safety Report 16399288 (Version 1)
Quarter: 2019Q2

REPORT INFORMATION
  Report Type: Spontaneous
  Country: US (occurrence: US)
  Receive Date: 20190606
  Receipt Date: 20190606
  Transmission Date: 20190711
  Serious: No
  Sender: FDA-Public Use
  Company Number: US-TEVA-2019-US-1058210

PATIENT
  Sex: Female

DRUGS (1)
  1. SUCRALFATE TEVA [Suspect]
     Active Substance: SUCRALFATE
     Indication: GASTRITIS
     Dosage: STRENGTH: 1
     Dates: start: 20190526

REACTIONS (6)
  - Product solubility abnormal [Unknown]
  - Product physical issue [Unknown]
  - Retching [Unknown]
  - Oropharyngeal pain [Unknown]
  - Abdominal pain upper [Unknown]
  - Wrong technique in product usage process [Unknown]

NARRATIVE: CASE EVENT DATE: 20190526
